FAERS Safety Report 19913193 (Version 2)
Quarter: 2021Q4

REPORT INFORMATION
  Report Type: Spontaneous
  Country: BR (occurrence: BR)
  Receive Date: 20211004
  Receipt Date: 20211104
  Transmission Date: 20220303
  Serious: Yes (Hospitalization, Other)
  Sender: FDA-Public Use
  Company Number: BR-PFIZER INC-202101234238

PATIENT
  Age: 64 Year
  Sex: Female
  Weight: 76 kg

DRUGS (10)
  1. ZYVOX [Suspect]
     Active Substance: LINEZOLID
     Indication: Coronavirus infection
     Dosage: 600 MG, 2X/DAY (EVERY 12 HOURS)
     Route: 042
     Dates: start: 20210607, end: 20210724
  2. ZYVOX [Suspect]
     Active Substance: LINEZOLID
     Indication: Sepsis
  3. MEROPENEM [Concomitant]
     Active Substance: MEROPENEM
     Dosage: 1 G, 3X/DAY
     Route: 042
     Dates: start: 20210607, end: 20210709
  4. ONDANSETRON [Concomitant]
     Active Substance: ONDANSETRON
     Dosage: 8 MG, 3X/DAY
     Route: 042
     Dates: start: 20210521, end: 20210808
  5. DIPYRONE [Concomitant]
     Active Substance: DIPYRONE
     Dosage: 2000 MG, 4X/DAY
     Route: 042
     Dates: start: 20210521, end: 20210808
  6. .ALPHA.-TOCOPHEROL ACETATE [Concomitant]
     Active Substance: .ALPHA.-TOCOPHEROL ACETATE
     Dosage: 400 MG, 3X/DAY
     Route: 061
     Dates: start: 20210614, end: 20210706
  7. PANTOPRAZOLE SODIUM [Concomitant]
     Active Substance: PANTOPRAZOLE SODIUM
     Dosage: 40 MG, DAILY
     Route: 042
     Dates: start: 20210524, end: 20210722
  8. PREDNISONE [Concomitant]
     Active Substance: PREDNISONE
     Dosage: 40 MG, DAILY (VIA NASOENTERIC TUBE)
     Dates: start: 20210604, end: 20210629
  9. QUETIAPINE [Concomitant]
     Active Substance: QUETIAPINE
     Dosage: 50 MG, 4X/DAY (VIA NASOENTERIC TUBE)
     Dates: start: 20210601, end: 20210725
  10. SYNTHROID [Concomitant]
     Active Substance: LEVOTHYROXINE SODIUM
     Dosage: 50 UG, IN FASTING (VIA NASOENTERIC TUBE)
     Dates: start: 20210521, end: 20210801

REACTIONS (3)
  - Thrombocytopenia [Recovered/Resolved]
  - Hepatotoxicity [Recovered/Resolved]
  - Off label use [Unknown]

NARRATIVE: CASE EVENT DATE: 20210607
